FAERS Safety Report 17464263 (Version 1)
Quarter: 2020Q1

REPORT INFORMATION
  Report Type: Spontaneous
  Country: US (occurrence: US)
  Receive Date: 20200226
  Receipt Date: 20200226
  Transmission Date: 20200409
  Serious: Yes (Death, Hospitalization)
  Sender: FDA-Public Use
  Company Number: US-MYLANLABS-2020M1020971

PATIENT
  Age: 29 Year
  Sex: Female

DRUGS (1)
  1. DIPHENHYDRAMINE. [Suspect]
     Active Substance: DIPHENHYDRAMINE
     Indication: PRODUCT USED FOR UNKNOWN INDICATION
     Route: 048

REACTIONS (13)
  - Toxicity to various agents [Fatal]
  - Pulseless electrical activity [Recovered/Resolved]
  - Intentional overdose [Fatal]
  - Brain death [Fatal]
  - Seizure [Recovered/Resolved]
  - Hallucination [Not Recovered/Not Resolved]
  - Electrocardiogram QT prolonged [Recovering/Resolving]
  - Tachycardia [Fatal]
  - Completed suicide [Fatal]
  - Hypertension [Fatal]
  - Hypotonia [Fatal]
  - Loss of consciousness [Not Recovered/Not Resolved]
  - Pupil fixed [Not Recovered/Not Resolved]
